FAERS Safety Report 22029825 (Version 1)
Quarter: 2023Q1

REPORT INFORMATION
  Report Type: Spontaneous
  Country: US (occurrence: US)
  Receive Date: 20230223
  Receipt Date: 20230223
  Transmission Date: 20230418
  Serious: Yes (Death, Other)
  Sender: FDA-Public Use
  Company Number: US-INCYTE CORPORATION-2023IN001920

PATIENT

DRUGS (1)
  1. JAKAFI [Suspect]
     Active Substance: RUXOLITINIB
     Indication: Acute graft versus host disease
     Dosage: 10 MILLIGRAM, TWICE DAILY
     Route: 048
     Dates: start: 202110

REACTIONS (1)
  - Death [Fatal]

NARRATIVE: CASE EVENT DATE: 20230217
